FAERS Safety Report 10688568 (Version 2)
Quarter: 2015Q1

REPORT INFORMATION
  Report Type: Report from Study
  Country: US (occurrence: US)
  Receive Date: 20150102
  Receipt Date: 20150206
  Transmission Date: 20150720
  Serious: Yes (Hospitalization)
  Sender: FDA-Public Use
  Company Number: US-ACTELION-A-NJ2014-110378

PATIENT
  Age: 52 Year
  Sex: Female

DRUGS (3)
  1. TRACLEER [Suspect]
     Active Substance: BOSENTAN\BOSENTAN MONOHYDRATE
     Indication: COR PULMONALE CHRONIC
     Dosage: UNK
     Route: 048
  2. TYVASO [Concomitant]
     Active Substance: TREPROSTINIL
  3. ADCIRCA [Concomitant]
     Active Substance: TADALAFIL

REACTIONS (4)
  - Influenza [Unknown]
  - Syncope [Unknown]
  - Oral herpes [Unknown]
  - Scab [Unknown]
